FAERS Safety Report 7569359-0 (Version None)
Quarter: 2011Q2

REPORT INFORMATION
  Report Type: 
  Country: None (occurrence: None)
  Receive Date: 20110623
  Receipt Date: 20110616
  Transmission Date: 20111010
  Serious: Yes (Other)
  Sender: FDA-Public Use
  Company Number: US-PFIZER INC-2011133205

PATIENT
  Sex: Female

DRUGS (3)
  1. EFFEXOR XR [Suspect]
     Dosage: UNK
  2. CELEBREX [Suspect]
     Dosage: UNK
  3. VENLAFAXINE HCL [Suspect]
     Dosage: UNK

REACTIONS (4)
  - CONFUSIONAL STATE [None]
  - GASTRIC DISORDER [None]
  - ABDOMINAL DISCOMFORT [None]
  - MENTAL DISORDER [None]
